FAERS Safety Report 5416022-8 (Version None)
Quarter: 2007Q3

REPORT INFORMATION
  Report Type: 
  Country: None (occurrence: None)
  Receive Date: 20070815
  Receipt Date: 20070806
  Transmission Date: 20080115
  Serious: Yes (Hospitalization)
  Sender: FDA-Public Use
  Company Number: PL-ABBOTT-07P-129-0376823-00

PATIENT
  Sex: Male

DRUGS (3)
  1. FENOFIBRATE [Suspect]
     Indication: DYSLIPIDAEMIA
     Route: 048
     Dates: start: 20070426
  2. SIMVASTATIN [Concomitant]
     Indication: DYSLIPIDAEMIA
     Route: 048
     Dates: start: 20070426
  3. SIMVASTATIN [Concomitant]
     Route: 048

REACTIONS (1)
  - ISCHAEMIC STROKE [None]
